FAERS Safety Report 10150182 (Version 1)
Quarter: 2014Q2

REPORT INFORMATION
  Report Type: Spontaneous
  Country: US (occurrence: None)
  Receive Date: 20140501
  Receipt Date: 20140501
  Transmission Date: 20141212
  Serious: Yes (Hospitalization)
  Sender: FDA-Public Use
  Company Number: None

PATIENT
  Age: 74 Year
  Sex: Female

DRUGS (15)
  1. WARFARIN [Suspect]
     Indication: DEEP VEIN THROMBOSIS
     Route: 048
     Dates: start: 20130903
  2. DONEPEZIL [Concomitant]
  3. DORZOLAMIDE OPTHALMIC [Concomitant]
  4. KETOROLAC [Concomitant]
  5. LOVASTATIN [Concomitant]
  6. MEGESTROL [Concomitant]
  7. METFORMIN [Concomitant]
  8. MEMANTINE [Concomitant]
  9. NAPROXEN [Concomitant]
  10. OMEPRAZOLE [Concomitant]
  11. PREDNISOLONE [Concomitant]
  12. ACETAMINOPHEN-CODEINE [Concomitant]
  13. LOSARTAN [Concomitant]
  14. FUROSEMIDE [Concomitant]
  15. CALCIUM [Concomitant]

REACTIONS (1)
  - International normalised ratio increased [None]
